FAERS Safety Report 18684355 (Version 2)
Quarter: 2021Q1

REPORT INFORMATION
  Report Type: Spontaneous
  Country: JP (occurrence: JP)
  Receive Date: 20201230
  Receipt Date: 20210329
  Transmission Date: 20210419
  Serious: Yes (Other)
  Sender: FDA-Public Use
  Company Number: JP-AMGEN-JPNSP2020211121

PATIENT
  Age: 82 Year
  Sex: Female

DRUGS (4)
  1. METHYCOBAL [Concomitant]
     Active Substance: METHYLCOBALAMIN
  2. EDIROL [Concomitant]
     Active Substance: ELDECALCITOL
  3. EVENITY [Suspect]
     Active Substance: ROMOSOZUMAB-AQQG
     Indication: PRODUCT USED FOR UNKNOWN INDICATION
     Dosage: 210 MILLIGRAM
     Route: 058
     Dates: start: 20191114
  4. LAVIN [Concomitant]

REACTIONS (1)
  - Fracture [Recovered/Resolved]

NARRATIVE: CASE EVENT DATE: 20200226
